APPROVED DRUG PRODUCT: CALCIPOTRIENE AND BETAMETHASONE DIPROPIONATE
Active Ingredient: BETAMETHASONE DIPROPIONATE; CALCIPOTRIENE
Strength: 0.064%;0.005%
Dosage Form/Route: OINTMENT;TOPICAL
Application: A201615 | Product #001
Applicant: CHARTWELL RX SCIENCES LLC
Approved: Jan 14, 2013 | RLD: No | RS: No | Type: DISCN